FAERS Safety Report 8159139-X (Version None)
Quarter: 2012Q1

REPORT INFORMATION
  Report Type: 
  Country: None (occurrence: None)
  Receive Date: 20120103
  Receipt Date: 20111114
  Transmission Date: 20120608
  Serious: No
  Sender: FDA-Public Use
  Company Number: AE-2011-002943

PATIENT
  Age: 59 Year
  Sex: Male
  Weight: 76.6579 kg

DRUGS (8)
  1. INCIVEK [Suspect]
     Dosage: 2250 MG (1125 MG, 2 IN 1 D)
     Dates: start: 20110929
  2. RIBAVIRIN [Concomitant]
  3. EFFEXOR [Concomitant]
  4. PEGASUS (PEGINTERFERON ALFA-2A) [Concomitant]
  5. RAMIRAL [Concomitant]
  6. AMBIEN [Concomitant]
  7. TERASODIUM [Concomitant]
  8. OXIBUTIN XR (OXYBUTYNIN) [Concomitant]

REACTIONS (2)
  - ABDOMINAL PAIN UPPER [None]
  - HAEMORRHOIDAL HAEMORRHAGE [None]
